FAERS Safety Report 22265339 (Version 1)
Quarter: 2023Q2

REPORT INFORMATION
  Report Type: Spontaneous
  Country: US (occurrence: US)
  Receive Date: 20230428
  Receipt Date: 20230428
  Transmission Date: 20230721
  Serious: Yes (Hospitalization)
  Sender: FDA-Public Use
  Company Number: US-ANIPHARMA-2023-US-011017

PATIENT
  Age: 66 Year
  Sex: Female
  Weight: 132 kg

DRUGS (1)
  1. CORTICOTROPIN [Suspect]
     Active Substance: CORTICOTROPIN
     Indication: Rheumatoid arthritis
     Dosage: INJECT 80 UNITS (1ML) SUBCUTANEOUSLY TWO TIMES A WEEK AS DIRECTED
     Route: 058

REACTIONS (1)
  - Hospitalisation [Unknown]
